FAERS Safety Report 5808847-1 (Version None)
Quarter: 2008Q3

REPORT INFORMATION
  Report Type: 
  Country: None (occurrence: None)
  Receive Date: 20080714
  Receipt Date: 20080702
  Transmission Date: 20090109
  Serious: No
  Sender: FDA-Public Use
  Company Number: DE-ELI_LILLY_AND_COMPANY-DE200807000600

PATIENT
  Sex: Female

DRUGS (2)
  1. CYMBALTA [Suspect]
     Indication: DEPRESSION
     Dosage: UNK, UNKNOWN
     Route: 048
  2. LEVOTHYROXINE SODIUM [Concomitant]
     Dosage: UNK, UNKNOWN
     Route: 065

REACTIONS (7)
  - ALANINE AMINOTRANSFERASE INCREASED [None]
  - ASPARTATE AMINOTRANSFERASE INCREASED [None]
  - BLOOD CHOLESTEROL INCREASED [None]
  - BLOOD IRON INCREASED [None]
  - BLOOD SODIUM INCREASED [None]
  - LIPASE INCREASED [None]
  - PANCREATIC DISORDER [None]
